FAERS Safety Report 11481225 (Version 28)
Quarter: 2019Q1

REPORT INFORMATION
  Report Type: Report from Study
  Country: CA (occurrence: CA)
  Receive Date: 20150909
  Receipt Date: 20190316
  Transmission Date: 20190417
  Serious: Yes (Hospitalization, Other)
  Sender: FDA-Public Use
  Company Number: PHHY2015CA107614

PATIENT
  Age: 34 Year
  Sex: Female

DRUGS (10)
  1. SYNTHROID [Concomitant]
     Active Substance: LEVOTHYROXINE SODIUM
     Indication: PRODUCT USED FOR UNKNOWN INDICATION
     Dosage: 75 MG, QD
     Route: 065
     Dates: start: 20170620
  2. SANDOSTATIN LAR DEPOT [Suspect]
     Active Substance: OCTREOTIDE ACETATE
     Indication: NEUROENDOCRINE CARCINOMA METASTATIC
     Dosage: 30 MG, QMO (EVERY 30 DAYS)
     Route: 030
     Dates: start: 20150609, end: 20160415
  3. SANDOSTATIN LAR DEPOT [Suspect]
     Active Substance: OCTREOTIDE ACETATE
     Dosage: 30 MG, Q2W
     Route: 030
  4. HYDROMORPH CONTIN [Concomitant]
     Active Substance: HYDROMORPHONE
     Dosage: 6 MG, Q12H
     Route: 048
     Dates: start: 20181027
  5. OXYNEO [Concomitant]
     Active Substance: OXYCODONE
     Indication: PRODUCT USED FOR UNKNOWN INDICATION
     Dosage: 30 MG, BID
     Route: 065
  6. SANDOSTATIN LAR DEPOT [Suspect]
     Active Substance: OCTREOTIDE ACETATE
     Dosage: 30 MG, Q3W
     Route: 030
     Dates: start: 20160506
  7. HYDROMORPH CONTIN [Concomitant]
     Active Substance: HYDROMORPHONE
     Indication: PAIN
     Dosage: 12 MG, BID
     Route: 048
  8. SANDOSTATIN [Suspect]
     Active Substance: OCTREOTIDE ACETATE
     Indication: NEUROENDOCRINE CARCINOMA METASTATIC
     Dosage: UNK UNK, ONCE/SINGLE (TEST DOSE)
     Route: 058
     Dates: start: 20150604, end: 20150604
  9. SANDOSTATIN LAR DEPOT [Suspect]
     Active Substance: OCTREOTIDE ACETATE
     Dosage: 30 MG, QMO (EVERY 2 WEEKS)
     Route: 030
  10. HYDROMORPH CONTIN [Concomitant]
     Active Substance: HYDROMORPHONE
     Dosage: 4 MG, Q4H
     Route: 048

REACTIONS (34)
  - Malaise [Unknown]
  - Lung infection [Unknown]
  - Constipation [Unknown]
  - Dehydration [Unknown]
  - Injection site pruritus [Recovering/Resolving]
  - Injection site pain [Unknown]
  - Hypersensitivity [Unknown]
  - Pain [Unknown]
  - Intervertebral disc injury [Unknown]
  - Depression [Unknown]
  - Dry mouth [Unknown]
  - Drug intolerance [Unknown]
  - Stress [Unknown]
  - Alopecia [Unknown]
  - Fatigue [Unknown]
  - Flushing [Unknown]
  - Weight decreased [Unknown]
  - Asthenia [Unknown]
  - Flank pain [Unknown]
  - Inappropriate schedule of product administration [Unknown]
  - Polycystic liver disease [Unknown]
  - Rash generalised [Unknown]
  - Blood pressure increased [Unknown]
  - Musculoskeletal pain [Unknown]
  - Musculoskeletal discomfort [Unknown]
  - Nausea [Unknown]
  - Injection site irritation [Recovered/Resolved]
  - Injection site discomfort [Unknown]
  - Hand fracture [Unknown]
  - Bowel movement irregularity [Unknown]
  - Back pain [Unknown]
  - Abdominal pain [Unknown]
  - Dizziness [Unknown]
  - Injection site erythema [Recovering/Resolving]

NARRATIVE: CASE EVENT DATE: 2015
